FAERS Safety Report 20141866 (Version 1)
Quarter: 2021Q4

REPORT INFORMATION
  Report Type: Report from Study
  Country: US (occurrence: US)
  Receive Date: 20211202
  Receipt Date: 20211202
  Transmission Date: 20220303
  Serious: Yes (Other)
  Sender: FDA-Public Use
  Company Number: US-NOVARTISPH-NVSC2020US360545

PATIENT
  Sex: Male

DRUGS (5)
  1. LUTATHERA [Suspect]
     Active Substance: LUTETIUM OXODOTREOTIDE LU-177
     Indication: Product used for unknown indication
     Dosage: UNK
     Route: 065
  2. ONDANSETRON [Suspect]
     Active Substance: ONDANSETRON
     Indication: Product used for unknown indication
     Route: 065
  3. OCTREOTIDE [Suspect]
     Active Substance: OCTREOTIDE
     Indication: Product used for unknown indication
     Route: 065
  4. OCTREOTIDE [Suspect]
     Active Substance: OCTREOTIDE
  5. OCTREOTIDE [Suspect]
     Active Substance: OCTREOTIDE

REACTIONS (11)
  - Metastases to liver [Unknown]
  - Metastases to bone [Unknown]
  - Muscular weakness [Unknown]
  - Hypoaesthesia [Recovering/Resolving]
  - White blood cell count increased [Unknown]
  - Red blood cell count decreased [Unknown]
  - Neutrophil count increased [Unknown]
  - Metanephrine urine increased [Unknown]
  - Normetanephrine urine increased [Unknown]
  - Palpitations [Unknown]
  - Haemoglobin decreased [Unknown]
